FAERS Safety Report 14872092 (Version 1)
Quarter: 2018Q2

REPORT INFORMATION
  Report Type: Other
  Country: IN (occurrence: IN)
  Receive Date: 20180509
  Receipt Date: 20180509
  Transmission Date: 20180711
  Serious: Yes (Death)
  Sender: FDA-Public Use
  Company Number: IN-LEADING PHARMA-2047506

PATIENT
  Age: 23 Year
  Sex: Female

DRUGS (1)
  1. FOLIC ACID. [Suspect]
     Active Substance: FOLIC ACID
     Route: 048

REACTIONS (1)
  - Toxicity to various agents [Fatal]
